FAERS Safety Report 6540191-X (Version None)
Quarter: 2010Q1

REPORT INFORMATION
  Report Type: 
  Country: None (occurrence: None)
  Receive Date: 20100115
  Receipt Date: 20100106
  Transmission Date: 20100710
  Serious: Yes (Other)
  Sender: FDA-Public Use
  Company Number: CH-WATSON-2010-00116

PATIENT
  Age: 80 Year
  Sex: Female

DRUGS (1)
  1. LEVETIRACETAM [Suspect]
     Indication: EPILEPSY
     Dosage: 1000 MG, BID
     Dates: start: 20020101

REACTIONS (2)
  - ENCEPHALOPATHY [None]
  - POISONING [None]
